FAERS Safety Report 9049594 (Version 1)
Quarter: 2013Q1

REPORT INFORMATION
  Report Type: Spontaneous
  Country: US (occurrence: US)
  Receive Date: 20130205
  Receipt Date: 20130205
  Transmission Date: 20140127
  Serious: Yes (Death)
  Sender: FDA-Public Use
  Company Number: US-ROCHE-1187529

PATIENT
  Age: 50 Year
  Sex: Male

DRUGS (2)
  1. XELODA [Suspect]
     Indication: BILE DUCT CANCER
     Route: 065
     Dates: start: 201112
  2. XELODA [Suspect]
     Route: 065
     Dates: start: 201201

REACTIONS (1)
  - Disease progression [Fatal]
